FAERS Safety Report 17367578 (Version 1)
Quarter: 2020Q1

REPORT INFORMATION
  Report Type: Spontaneous
  Country: US (occurrence: US)
  Receive Date: 20200204
  Receipt Date: 20200204
  Transmission Date: 20200409
  Serious: Yes (Other)
  Sender: FDA-Public Use
  Company Number: US-SAGENT PHARMACEUTICALS-2020SAG000163

PATIENT

DRUGS (4)
  1. FLUOROURACIL. [Suspect]
     Active Substance: FLUOROURACIL
     Indication: PANCREATIC CARCINOMA
  2. IRINOTECAN                         /01280202/ [Suspect]
     Active Substance: IRINOTECAN
     Indication: PANCREATIC CARCINOMA
  3. OXALIPLATIN. [Suspect]
     Active Substance: OXALIPLATIN
     Indication: PANCREATIC CARCINOMA
  4. LEUCOVORIN CALCIUM. [Suspect]
     Active Substance: LEUCOVORIN CALCIUM
     Indication: PANCREATIC CARCINOMA

REACTIONS (1)
  - Nicotinic acid deficiency [Recovering/Resolving]
